FAERS Safety Report 11530159 (Version 1)
Quarter: 2015Q3

REPORT INFORMATION
  Report Type: Spontaneous
  Country: US (occurrence: US)
  Receive Date: 20150921
  Receipt Date: 20150921
  Transmission Date: 20151125
  Serious: No
  Sender: FDA-Public Use
  Company Number: US-GLAXOSMITHKLINE-US2015132979

PATIENT
  Age: 48 Year
  Sex: Female

DRUGS (1)
  1. FLONASE [Suspect]
     Active Substance: FLUTICASONE PROPIONATE
     Indication: HYPERSENSITIVITY
     Dosage: UNK
     Dates: start: 20150915, end: 20150915

REACTIONS (10)
  - Lacrimation increased [Recovering/Resolving]
  - Paraesthesia [Recovering/Resolving]
  - Ear pain [Recovering/Resolving]
  - Neck pain [Recovering/Resolving]
  - Dysphagia [Recovering/Resolving]
  - Chest pain [Recovering/Resolving]
  - Pharyngeal oedema [Recovering/Resolving]
  - Hypersensitivity [Recovering/Resolving]
  - Dyspnoea [Recovering/Resolving]
  - Sneezing [Recovering/Resolving]

NARRATIVE: CASE EVENT DATE: 20150915
